FAERS Safety Report 8115162-2 (Version None)
Quarter: 2012Q1

REPORT INFORMATION
  Report Type: 
  Country: None (occurrence: None)
  Receive Date: 20120206
  Receipt Date: 20120201
  Transmission Date: 20120608
  Serious: Yes (Hospitalization, Other)
  Sender: FDA-Public Use
  Company Number: IT-PFIZER INC-2011279019

PATIENT
  Age: 76 Year
  Sex: Male

DRUGS (1)
  1. SUTENT [Suspect]
     Indication: METASTATIC RENAL CELL CARCINOMA
     Dosage: 50 MG, 1X/DAY
     Route: 048
     Dates: start: 20111003, end: 20111107

REACTIONS (7)
  - HYPERTENSION [None]
  - THROMBOCYTOPENIA [None]
  - CARDIAC FAILURE [None]
  - PLEURAL EFFUSION [None]
  - WEIGHT INCREASED [None]
  - BLOOD THYROID STIMULATING HORMONE INCREASED [None]
  - OEDEMA [None]
